FAERS Safety Report 6014972-5 (Version None)
Quarter: 2008Q4

REPORT INFORMATION
  Report Type: 
  Country: None (occurrence: None)
  Receive Date: 20081219
  Receipt Date: 20081210
  Transmission Date: 20090506
  Serious: Yes (Hospitalization)
  Sender: FDA-Public Use
  Company Number: BE-AMGEN-US315672

PATIENT
  Age: 77 Year
  Sex: Male

DRUGS (5)
  1. ENBREL [Suspect]
     Indication: RHEUMATOID ARTHRITIS
     Route: 058
     Dates: start: 20020601
  2. DOMINAL [Concomitant]
     Dosage: 80 MG
     Route: 048
  3. TEMESTA [Concomitant]
     Dosage: 2,5 MG
  4. DURAGESIC-100 [Concomitant]
     Dosage: 50 MCG PER 72 H
     Route: 062
  5. MEDROL [Concomitant]
     Route: 048

REACTIONS (4)
  - ABNORMAL BEHAVIOUR [None]
  - DELIRIUM [None]
  - DEMYELINATION [None]
  - MEMORY IMPAIRMENT [None]
